FAERS Safety Report 12779174 (Version 1)
Quarter: 2016Q3

REPORT INFORMATION
  Report Type: Spontaneous
  Country: US (occurrence: US)
  Receive Date: 20160926
  Receipt Date: 20160926
  Transmission Date: 20161109
  Serious: No
  Sender: FDA-Public Use
  Company Number: US-JAZZ-2016-US-010504

PATIENT
  Sex: Female
  Weight: 66.67 kg

DRUGS (20)
  1. FLONASE [Concomitant]
     Active Substance: FLUTICASONE PROPIONATE
  2. XYREM [Suspect]
     Active Substance: SODIUM OXYBATE
     Indication: SOMNOLENCE
     Dosage: 2.5 G, BID
     Route: 048
     Dates: start: 201604
  3. FISH OIL CONCENTRATE [Concomitant]
  4. METHIMAZOLE. [Concomitant]
     Active Substance: METHIMAZOLE
  5. ADDERALL [Concomitant]
     Active Substance: AMPHETAMINE ASPARTATE\AMPHETAMINE SULFATE\DEXTROAMPHETAMINE SACCHARATE\DEXTROAMPHETAMINE SULFATE
  6. LUNESTA [Concomitant]
     Active Substance: ESZOPICLONE
  7. BIOTIN [Concomitant]
     Active Substance: BIOTIN
  8. MULTIVITAMINS [Concomitant]
     Active Substance: VITAMINS
  9. POTASSIUM GLUCONATE [Concomitant]
     Active Substance: POTASSIUM GLUCONATE
  10. ASPIRIN. [Concomitant]
     Active Substance: ASPIRIN
  11. LEXAPRO [Concomitant]
     Active Substance: ESCITALOPRAM OXALATE
  12. AMLODIPINE BESYLATE. [Concomitant]
     Active Substance: AMLODIPINE BESYLATE
  13. VENTOLIN HFA [Concomitant]
     Active Substance: ALBUTEROL SULFATE
  14. OXYBUTYNIN CHLORIDE. [Concomitant]
     Active Substance: OXYBUTYNIN CHLORIDE
  15. XYREM [Suspect]
     Active Substance: SODIUM OXYBATE
     Indication: NARCOLEPSY
     Dosage: UNKNOWN DOSE
     Dates: start: 201603, end: 201604
  16. MAGNESIUM OXIDE. [Concomitant]
     Active Substance: MAGNESIUM OXIDE
  17. NUVIGIL [Concomitant]
     Active Substance: ARMODAFINIL
  18. VITAMIN D [Concomitant]
     Active Substance: CHOLECALCIFEROL
  19. PROVIGIL [Concomitant]
     Active Substance: MODAFINIL
  20. VALERIAN ROOT [Concomitant]
     Active Substance: VALERIAN

REACTIONS (6)
  - Condition aggravated [Not Recovered/Not Resolved]
  - Activities of daily living impaired [Not Recovered/Not Resolved]
  - Abnormal dreams [Not Recovered/Not Resolved]
  - Memory impairment [Recovering/Resolving]
  - Fatigue [Not Recovered/Not Resolved]
  - Increased appetite [Not Recovered/Not Resolved]

NARRATIVE: CASE EVENT DATE: 2016
